FAERS Safety Report 16788402 (Version 1)
Quarter: 2019Q3

REPORT INFORMATION
  Report Type: Spontaneous
  Country: FR (occurrence: FR)
  Receive Date: 20190910
  Receipt Date: 20190910
  Transmission Date: 20191005
  Serious: Yes (Hospitalization)
  Sender: FDA-Public Use
  Company Number: FR-ADVANZ PHARMA-MAPI_00011450

PATIENT

DRUGS (14)
  1. CYMBALTA [Suspect]
     Active Substance: DULOXETINE HYDROCHLORIDE
     Indication: POLYNEUROPATHY
     Dosage: UNK
     Route: 048
     Dates: start: 20160512, end: 20160514
  2. LEVOTHYROX [Concomitant]
     Active Substance: LEVOTHYROXINE
  3. ESIDREX [Concomitant]
     Active Substance: HYDROCHLOROTHIAZIDE
  4. OCTAGAM IMMUNE GLOBULIN (HUMAN) [Suspect]
     Active Substance: HUMAN IMMUNOGLOBULIN G
     Dosage: 60 MG, BID
     Route: 042
     Dates: start: 20160509, end: 20160510
  5. FOLIC ACID. [Concomitant]
     Active Substance: FOLIC ACID
  6. NICARDIPINE [Concomitant]
     Active Substance: NICARDIPINE
  7. HYDROXYCHLOROQUINE [Suspect]
     Active Substance: HYDROXYCHLOROQUINE
     Indication: CRYOGLOBULINAEMIA
     Dosage: UNK
     Route: 048
     Dates: start: 20160512, end: 20160517
  8. CARDENSIEL [Concomitant]
     Active Substance: BISOPROLOL FUMARATE
  9. RIVOTRIL [Concomitant]
     Active Substance: CLONAZEPAM
  10. OCTAGAM IMMUNE GLOBULIN (HUMAN) [Suspect]
     Active Substance: HUMAN IMMUNOGLOBULIN G
     Indication: POLYNEUROPATHY
     Dosage: 60 MG, QD
     Route: 042
     Dates: start: 201604, end: 20160510
  11. LERCAN [Concomitant]
     Active Substance: LERCANIDIPINE
  12. KALEORID [Concomitant]
     Active Substance: POTASSIUM CHLORIDE
  13. LAMALINE [Concomitant]
  14. ELISOR [Concomitant]
     Active Substance: PRAVASTATIN SODIUM

REACTIONS (2)
  - Erythema [Recovered/Resolved]
  - Generalised erythema [Recovering/Resolving]

NARRATIVE: CASE EVENT DATE: 2016
